FAERS Safety Report 17634579 (Version 2)
Quarter: 2021Q3

REPORT INFORMATION
  Report Type: Spontaneous
  Country: CA (occurrence: CA)
  Receive Date: 20200406
  Receipt Date: 20210909
  Transmission Date: 20211014
  Serious: Yes (Disabling, Other)
  Sender: FDA-Public Use
  Company Number: CA-SAMSUNG BIOEPIS-SB-2020-10757

PATIENT
  Age: 22 Year
  Sex: Male
  Weight: 87 kg

DRUGS (8)
  1. VANCOMYCIN [Concomitant]
     Active Substance: VANCOMYCIN
     Indication: PRODUCT USED FOR UNKNOWN INDICATION
     Route: 048
  2. METHYLPREDNISOLONE. [Concomitant]
     Active Substance: METHYLPREDNISOLONE
     Indication: PRODUCT USED FOR UNKNOWN INDICATION
     Dosage: UNKNOWN
     Route: 042
  3. PREDNISONE. [Concomitant]
     Active Substance: PREDNISONE
     Indication: PRODUCT USED FOR UNKNOWN INDICATION
     Route: 065
  4. RITALIN [Concomitant]
     Active Substance: METHYLPHENIDATE HYDROCHLORIDE
     Indication: PRODUCT USED FOR UNKNOWN INDICATION
     Route: 048
  5. INFLIXIMAB [Suspect]
     Active Substance: INFLIXIMAB
     Indication: COLITIS ULCERATIVE
     Route: 042
  6. METRONIDAZOLE BENZOATE [Concomitant]
     Active Substance: METRONIDAZOLE BENZOATE
     Indication: PRODUCT USED FOR UNKNOWN INDICATION
     Dosage: UNKNOWN
     Route: 042
  7. DESVENLAFAXINE SUCCINATE. [Concomitant]
     Active Substance: DESVENLAFAXINE SUCCINATE
     Indication: PRODUCT USED FOR UNKNOWN INDICATION
     Route: 048
  8. SOLU?MEDROL [Concomitant]
     Active Substance: METHYLPREDNISOLONE SODIUM SUCCINATE
     Indication: PRODUCT USED FOR UNKNOWN INDICATION
     Dosage: UNKNOWN
     Route: 042

REACTIONS (13)
  - Off label use [Recovered/Resolved]
  - Intentional product use issue [Recovered/Resolved]
  - Pain [Recovered/Resolved]
  - Inappropriate schedule of product administration [Recovered/Resolved]
  - Abdominal pain [Recovered/Resolved]
  - Condition aggravated [Recovered/Resolved]
  - Therapeutic product effect incomplete [Recovered/Resolved]
  - Drug level decreased [Recovered/Resolved]
  - Product dose omission issue [Recovered/Resolved]
  - Fatigue [Recovered/Resolved]
  - White blood cell count increased [Recovered/Resolved]
  - Weight increased [Recovered/Resolved]
  - Malaise [Recovered/Resolved]
